FAERS Safety Report 25911451 (Version 1)
Quarter: 2025Q4

REPORT INFORMATION
  Report Type: Spontaneous
  Country: JP (occurrence: JP)
  Receive Date: 20251013
  Receipt Date: 20251013
  Transmission Date: 20260117
  Serious: Yes (Hospitalization)
  Sender: JUBILANT
  Company Number: JP-JUBILANT CADISTA PHARMACEUTICALS-2025JUB00115

PATIENT
  Age: 42 Year
  Sex: Female

DRUGS (1)
  1. SODIUM CHLORIDE [Suspect]
     Active Substance: SODIUM CHLORIDE
     Indication: Suicide attempt
     Dosage: 200 G, FOLLOWED BY 1500 ML OF WATER
     Route: 048

REACTIONS (1)
  - Gastrointestinal mucosal necrosis [Recovered/Resolved]
